FAERS Safety Report 9571283 (Version 1)
Quarter: 2013Q1

REPORT INFORMATION
  Report Type: Spontaneous
  Country: US (occurrence: None)
  Receive Date: 20120515
  Receipt Date: 20120515
  Transmission Date: 20140127
  Serious: Yes (Other)
  Sender: FDA-Public Use
  Company Number: PHEH2009US08352

PATIENT
  Age: 47 Year
  Sex: Male
  Weight: 123.8 kg

DRUGS (2)
  1. ZOMETA (ZOLEDRONATE) [Suspect]
     Indication: RENAL CANCER METASTATIC
     Route: 042
     Dates: start: 20090714
  2. COLESTRYAMINE(COLESTRYAMINE) [Concomitant]

REACTIONS (7)
  - Uveitis [None]
  - Blood alkaline phosphatase increased [None]
  - Alanine aminotransferase increased [None]
  - Blood creatinine increased [None]
  - Eye pain [None]
  - Photophobia [None]
  - Eye irrigation [None]
